FAERS Safety Report 9326331 (Version 1)
Quarter: 2013Q2

REPORT INFORMATION
  Report Type: Report from Study
  Country: AU (occurrence: AU)
  Receive Date: 20130604
  Receipt Date: 20130604
  Transmission Date: 20140414
  Serious: Yes (Death)
  Sender: FDA-Public Use
  Company Number: AU-UCBSA-087128

PATIENT
  Sex: Female

DRUGS (4)
  1. LEVETIRACETAM [Suspect]
     Indication: GRAND MAL CONVULSION
     Dosage: 10 MG/KG
     Route: 042
  2. PHENYTOIN [Concomitant]
     Indication: EPILEPSY
  3. MIDAZOLAM [Concomitant]
     Indication: EPILEPSY
  4. PHENOBARBITONE [Concomitant]
     Indication: EPILEPSY

REACTIONS (1)
  - Death neonatal [Fatal]
